FAERS Safety Report 24921529 (Version 3)
Quarter: 2025Q3

REPORT INFORMATION
  Report Type: Spontaneous
  Country: EU (occurrence: EU)
  Receive Date: 20250204
  Receipt Date: 20250803
  Transmission Date: 20251021
  Serious: No
  Sender: ALEXION PHARMACEUTICALS
  Company Number: EU-AstraZeneca-CH-00796695AP

PATIENT
  Sex: Male

DRUGS (1)
  1. PULMICORT TURBUHALER [Suspect]
     Active Substance: BUDESONIDE

REACTIONS (3)
  - Illness [Unknown]
  - Drug ineffective [Unknown]
  - Product packaging quantity issue [Unknown]
